FAERS Safety Report 5339369-2 (Version None)
Quarter: 2007Q2

REPORT INFORMATION
  Report Type: 
  Country: None (occurrence: None)
  Receive Date: 20070525
  Receipt Date: 20060421
  Transmission Date: 20071010
  Serious: Yes (Other)
  Sender: FDA-Public Use
  Company Number: GXKR2006ES02523

PATIENT
  Age: 66 Year
  Sex: Female

DRUGS (3)
  1. CEFAZOLIN [Suspect]
  2. CEPHALOSPORINES (NO INGREDIENTS/SUBSTANCES) [Suspect]
     Dosage: PATCH TEST, CUTANEOUS
     Route: 003
  3. METAMIZOLE [Concomitant]

REACTIONS (5)
  - DERMATITIS EXFOLIATIVE [None]
  - ERYTHEMA [None]
  - RASH PRURITIC [None]
  - SKIN TEST POSITIVE [None]
  - TYPE IV HYPERSENSITIVITY REACTION [None]
